FAERS Safety Report 17042545 (Version 1)
Quarter: 2019Q4

REPORT INFORMATION
  Report Type: Spontaneous
  Country: GB (occurrence: GB)
  Receive Date: 20191118
  Receipt Date: 20191118
  Transmission Date: 20200122
  Serious: Yes (Other)
  Sender: FDA-Public Use
  Company Number: GB-PFIZER INC-2019488469

PATIENT
  Sex: Female

DRUGS (1)
  1. GENOTROPIN [Suspect]
     Active Substance: SOMATROPIN
     Dosage: UNK

REACTIONS (7)
  - Vitamin D deficiency [Unknown]
  - Overdose [Unknown]
  - Peripheral swelling [Unknown]
  - Drug level increased [Unknown]
  - Cerebrovascular accident [Unknown]
  - Swelling face [Unknown]
  - Abdominal distension [Unknown]
